FAERS Safety Report 7263077-4 (Version None)
Quarter: 2011Q1

REPORT INFORMATION
  Report Type: 
  Country: None (occurrence: None)
  Receive Date: 20110130
  Receipt Date: 20100930
  Transmission Date: 20110831
  Serious: No
  Sender: FDA-Public Use
  Company Number: US-ABBOTT-10P-163-0675594-00

PATIENT
  Sex: Female
  Weight: 79.45 kg

DRUGS (7)
  1. LOMOTIL [Concomitant]
     Indication: DIARRHOEA
  2. MULTI-VITAMIN [Concomitant]
     Indication: VITAMIN SUPPLEMENTATION
  3. HUMIRA [Suspect]
     Indication: COLITIS ULCERATIVE
     Dates: start: 20100810, end: 20101006
  4. METHOTREXATE [Suspect]
     Indication: COLITIS ULCERATIVE
     Dates: start: 20100810, end: 20100913
  5. HYOMAX [Concomitant]
     Indication: PAIN
     Dates: start: 20091117
  6. PREDNISONE [Concomitant]
     Indication: COLITIS ULCERATIVE
  7. IBUPROFEN [Concomitant]
     Indication: ARTHRALGIA

REACTIONS (7)
  - PALPITATIONS [None]
  - ABDOMINAL PAIN [None]
  - NAUSEA [None]
  - DYSPEPSIA [None]
  - AMENORRHOEA [None]
  - BLOOD PRESSURE INCREASED [None]
  - HEADACHE [None]
